FAERS Safety Report 9705310 (Version 3)
Quarter: 2014Q1

REPORT INFORMATION
  Report Type: Report from Study
  Country: FR (occurrence: FR)
  Receive Date: 20131122
  Receipt Date: 20140115
  Transmission Date: 20141002
  Serious: Yes (Other)
  Sender: FDA-Public Use
  Company Number: FR-SA-CAMP-1002567

PATIENT
  Age: 88 Year
  Sex: Male
  Weight: 72 kg

DRUGS (1)
  1. CAMPATH [Suspect]
     Indication: T-CELL PROLYMPHOCYTIC LEUKAEMIA
     Dosage: 20 MG, EVERY 2 WEEKS
     Route: 058
     Dates: start: 201209, end: 20121226

REACTIONS (3)
  - Disease recurrence [Unknown]
  - Neutropenia [Recovered/Resolved]
  - Thrombocytopenia [Recovered/Resolved]
